FAERS Safety Report 21715480 (Version 1)
Quarter: 2022Q4

REPORT INFORMATION
  Report Type: Spontaneous
  Country: US (occurrence: US)
  Receive Date: 20221212
  Receipt Date: 20221212
  Transmission Date: 20230112
  Serious: No
  Sender: FDA-Public Use
  Company Number: US-ALLERGAN-2224358US

PATIENT
  Sex: Female

DRUGS (1)
  1. NEBIVOLOL [Suspect]
     Active Substance: NEBIVOLOL
     Indication: Hypertension
     Dosage: 5 MG, BID
     Route: 048

REACTIONS (5)
  - Alopecia [Not Recovered/Not Resolved]
  - Hormone level abnormal [Unknown]
  - Condition aggravated [Unknown]
  - Paraesthesia [Unknown]
  - Thyroid hormones increased [Unknown]
